FAERS Safety Report 12582539 (Version 1)
Quarter: 2016Q3

REPORT INFORMATION
  Report Type: Spontaneous
  Country: US (occurrence: None)
  Receive Date: 20160721
  Receipt Date: 20160721
  Transmission Date: 20161109
  Serious: No
  Sender: FDA-Public Use
  Company Number: None

PATIENT
  Sex: Female

DRUGS (1)
  1. IMATINIB 100 MG TABLETS SUN PHARMACEUTICALS [Suspect]
     Active Substance: IMATINIB MESYLATE
     Indication: PANCREATIC CARCINOMA
     Route: 048
     Dates: start: 20150904, end: 20160623

REACTIONS (2)
  - Swelling face [None]
  - Fatigue [None]
